FAERS Safety Report 5261591-4 (Version None)
Quarter: 2007Q1

REPORT INFORMATION
  Report Type: 
  Country: None (occurrence: None)
  Receive Date: 20070307
  Receipt Date: 20070221
  Transmission Date: 20070707
  Serious: Yes (Death)
  Sender: FDA-Public Use
  Company Number: 2007JP000735

PATIENT
  Sex: Male

DRUGS (7)
  1. TACROLIMUS CAPSULES(TACROLIMUS CAPSULES) [Suspect]
     Indication: MYASTHENIA GRAVIS
     Dosage: SEE IMAGE, ORAL
     Route: 048
     Dates: start: 20050623, end: 20050713
  2. TACROLIMUS CAPSULES(TACROLIMUS CAPSULES) [Suspect]
     Indication: MYASTHENIA GRAVIS
     Dosage: SEE IMAGE, ORAL
     Route: 048
     Dates: start: 20050714, end: 20051116
  3. TACROLIMUS CAPSULES(TACROLIMUS CAPSULES) [Suspect]
     Indication: MYASTHENIA GRAVIS
     Dosage: SEE IMAGE, ORAL
     Route: 048
     Dates: start: 20051117, end: 20061001
  4. PREDNISOLONE [Concomitant]
  5. MYTELASE [Concomitant]
  6. SELBEX (TEPRENONE) [Concomitant]
  7. ASPARA-CA (ASPARTATE CALCIUM) [Concomitant]

REACTIONS (1)
  - COMPLETED SUICIDE [None]
